FAERS Safety Report 7466974-X (Version None)
Quarter: 2011Q2

REPORT INFORMATION
  Report Type: 
  Country: None (occurrence: None)
  Receive Date: 20110509
  Receipt Date: 20110412
  Transmission Date: 20111010
  Serious: Yes (Hospitalization)
  Sender: FDA-Public Use
  Company Number: US-BAYER-201041527NA

PATIENT
  Age: 33 Year
  Sex: Female

DRUGS (4)
  1. MIRCETTE [Concomitant]
     Dosage: UNK
  2. PHENERGAN [Concomitant]
  3. YASMIN [Suspect]
     Indication: ACNE
     Dosage: UNK
     Dates: start: 20000101, end: 20030101
  4. YAZ [Suspect]
     Indication: ACNE
     Dosage: UNK
     Dates: start: 20030101, end: 20090101

REACTIONS (6)
  - BILIARY DYSKINESIA [None]
  - UTERINE LEIOMYOMA [None]
  - DEPRESSION [None]
  - CHOLECYSTITIS CHRONIC [None]
  - GALLBLADDER DISORDER [None]
  - PAIN [None]
